FAERS Safety Report 15968546 (Version 1)
Quarter: 2019Q1

REPORT INFORMATION
  Report Type: Spontaneous
  Country: DE (occurrence: DE)
  Receive Date: 20190215
  Receipt Date: 20190215
  Transmission Date: 20190418
  Serious: Yes (Hospitalization, Other)
  Sender: FDA-Public Use
  Company Number: DE-MYLANLABS-2019M1013308

PATIENT
  Age: 49 Year
  Sex: Female

DRUGS (1)
  1. BACLOFEN. [Suspect]
     Active Substance: BACLOFEN
     Indication: MYOSCLEROSIS
     Dosage: UNK

REACTIONS (16)
  - Thinking abnormal [Unknown]
  - Drug abuse [Unknown]
  - Intentional product misuse [Unknown]
  - Seizure [Unknown]
  - Organic brain syndrome [Unknown]
  - Coma [Unknown]
  - Hypotonia [Unknown]
  - Miosis [Unknown]
  - Personality disorder [Unknown]
  - Salivary hypersecretion [Unknown]
  - Medication error [Unknown]
  - Self-medication [Unknown]
  - Overdose [Unknown]
  - Psychomotor hyperactivity [Unknown]
  - Bradycardia [Unknown]
  - Toxicity to various agents [Recovering/Resolving]
